FAERS Safety Report 22845731 (Version 2)
Quarter: 2023Q4

REPORT INFORMATION
  Report Type: Spontaneous
  Country: US (occurrence: US)
  Receive Date: 20230821
  Receipt Date: 20231122
  Transmission Date: 20240109
  Serious: No
  Sender: FDA-Public Use
  Company Number: US-AVADEL CNS PHARMACEUTICALS, LLC-2023AVA00022

PATIENT
  Age: 41 Year
  Sex: Female
  Weight: 81.633 kg

DRUGS (3)
  1. LUMRYZ [Suspect]
     Active Substance: SODIUM OXYBATE
     Indication: Narcolepsy
     Dosage: 9 G, 1X/DAY, NIGHTLY
     Route: 048
     Dates: start: 20230716, end: 2023
  2. LUMRYZ [Suspect]
     Active Substance: SODIUM OXYBATE
     Dosage: 9 G, 1X/DAY, NIGHTLY
     Route: 048
     Dates: start: 2023
  3. UNSPECIFIED INGREDIENT [Concomitant]
     Active Substance: UNSPECIFIED INGREDIENT

REACTIONS (5)
  - Sleep disorder [Unknown]
  - Initial insomnia [Recovering/Resolving]
  - Enuresis [Recovered/Resolved]
  - Nausea [Not Recovered/Not Resolved]
  - Therapeutic product effect delayed [Recovering/Resolving]

NARRATIVE: CASE EVENT DATE: 20230701
